FAERS Safety Report 7687140-9 (Version None)
Quarter: 2011Q3

REPORT INFORMATION
  Report Type: 
  Country: None (occurrence: None)
  Receive Date: 20110816
  Receipt Date: 20110809
  Transmission Date: 20111222
  Serious: Yes (Other)
  Sender: FDA-Public Use
  Company Number: PHHO2011FR13537

PATIENT
  Sex: Female
  Weight: 53 kg

DRUGS (2)
  1. AFINITOR [Suspect]
     Indication: BREAST CANCER METASTATIC
     Dosage: CODE NOT BROKEN
     Dates: start: 20101206, end: 20110722
  2. EXEMESTANE [Suspect]
     Dosage: 25 MG, QD
     Dates: start: 20101206, end: 20110722

REACTIONS (1)
  - RETINAL ARTERY THROMBOSIS [None]
